FAERS Safety Report 24653075 (Version 1)
Quarter: 2024Q4

REPORT INFORMATION
  Report Type: Spontaneous
  Country: JP (occurrence: JP)
  Receive Date: 20241122
  Receipt Date: 20241122
  Transmission Date: 20250114
  Serious: Yes (Life-Threatening, Hospitalization, Other)
  Sender: PFIZER
  Company Number: JP-PFIZER INC-PV202400122603

PATIENT
  Age: 69 Year
  Sex: Male
  Weight: 49 kg

DRUGS (12)
  1. ELREXFIO [Suspect]
     Active Substance: ELRANATAMAB-BCMM
     Indication: Plasma cell myeloma
     Dosage: 12 MG, SINGLE, FIRST TIME
     Route: 058
     Dates: start: 20240801
  2. ELREXFIO [Suspect]
     Active Substance: ELRANATAMAB-BCMM
     Dosage: 32 MG, SINGLE, SECOND TIME
     Route: 058
     Dates: start: 20240805
  3. ELREXFIO [Suspect]
     Active Substance: ELRANATAMAB-BCMM
     Indication: Plasma cell myeloma
     Dosage: 76 MG, SINGLE, THIRD TIME
     Route: 058
     Dates: start: 20240813
  4. ELREXFIO [Suspect]
     Active Substance: ELRANATAMAB-BCMM
     Dosage: 76 MG, SINGLE, FOURTH TIME
     Route: 058
     Dates: start: 20240819
  5. ELREXFIO [Suspect]
     Active Substance: ELRANATAMAB-BCMM
     Dosage: 76 MG, SINGLE, FIFTH TIME
     Route: 058
     Dates: start: 20240828
  6. TAMSULOSIN [Concomitant]
     Active Substance: TAMSULOSIN
     Indication: Benign prostatic hyperplasia
     Dosage: 0.2 MG, 1X/DAY IN THE MORNING
  7. FUROSEMIDE [Concomitant]
     Active Substance: FUROSEMIDE
     Indication: Oedema
     Dosage: 80 MG, 1X/DAY IN THE MORNING
  8. SPIRONOLACTONE [Concomitant]
     Active Substance: SPIRONOLACTONE
     Indication: Oedema
     Dosage: 25 MG, 1X/DAY IN THE MORNING
  9. FAMOTIDINE [Concomitant]
     Active Substance: FAMOTIDINE
     Indication: Prophylaxis
     Dosage: 20 MG, 1X/DAY IN THE MORNING
  10. METOCLOPRAMIDE [Concomitant]
     Active Substance: METOCLOPRAMIDE
     Indication: Nausea
     Dosage: 5 MG, 3X/DAY IN THE MORNING, AT NOON, AND IN THE EVENING
  11. MIYA-BM [Concomitant]
     Active Substance: CLOSTRIDIUM BUTYRICUM SPORES STRAIN M-55
     Indication: Dysbiosis
     Dosage: 2 DF, 3X/DAY IN THE MORNING, AT NOON, AND IN THE EVENING
  12. ZOVIRAX [Concomitant]
     Active Substance: ACYCLOVIR
     Indication: Infection prophylaxis
     Dosage: 200 MG, 1X/DAY IN THE MORNING

REACTIONS (7)
  - Bacteraemia [Recovered/Resolved]
  - Pneumonia [Recovered/Resolved]
  - Cellulitis [Unknown]
  - Sepsis [Unknown]
  - Hypogammaglobulinaemia [Unknown]
  - Achromobacter infection [Recovered/Resolved]
  - Neoplasm progression [Unknown]

NARRATIVE: CASE EVENT DATE: 20240903
